FAERS Safety Report 21942246 (Version 1)
Quarter: 2023Q1

REPORT INFORMATION
  Report Type: Report from Study
  Country: US (occurrence: US)
  Receive Date: 20230202
  Receipt Date: 20230202
  Transmission Date: 20230418
  Serious: No
  Sender: FDA-Public Use
  Company Number: US-EXELIXIS-CABO-22057075

PATIENT
  Age: 63 Year
  Sex: Female

DRUGS (1)
  1. CABOMETYX [Suspect]
     Active Substance: CABOZANTINIB S-MALATE
     Indication: Renal cancer
     Dosage: 60 MG, QD
     Route: 048
     Dates: start: 202210

REACTIONS (7)
  - Skin fissures [Unknown]
  - Skin discolouration [Unknown]
  - Sensitive skin [Unknown]
  - Hair colour changes [Unknown]
  - Dysphonia [Unknown]
  - Stomatitis [Unknown]
  - Rash [Unknown]

NARRATIVE: CASE EVENT DATE: 20221001
